FAERS Safety Report 9255584 (Version 1)
Quarter: 2013Q2

REPORT INFORMATION
  Report Type: Spontaneous
  Country: US (occurrence: US)
  Receive Date: 20130425
  Receipt Date: 20130425
  Transmission Date: 20140414
  Serious: No
  Sender: FDA-Public Use
  Company Number: US-BAUSCH-BL-2012-001269

PATIENT
  Age: 87 Year
  Sex: Female

DRUGS (2)
  1. ALREX (LOTEPREDNOL ETABONATE OPHTHALMIC SUSPENSION 0.2%) [Suspect]
     Indication: LACRIMATION INCREASED
     Dosage: ONE DROP IN EACH EYE AT BEDTIME ONCE
     Route: 047
     Dates: start: 20120911, end: 20120911
  2. ALREX (LOTEPREDNOL ETABONATE OPHTHALMIC SUSPENSION 0.2%) [Suspect]
     Indication: EYE INFLAMMATION

REACTIONS (3)
  - Headache [Recovered/Resolved]
  - Blood pressure increased [Recovered/Resolved]
  - Heart rate increased [Recovered/Resolved]
